FAERS Safety Report 4548947-X (Version None)
Quarter: 2004Q4

REPORT INFORMATION
  Report Type: 
  Country: None (occurrence: None)
  Receive Date: 20041227
  Receipt Date: 20040901
  Transmission Date: 20050328
  Serious: No
  Sender: FDA-Public Use
  Company Number: 04P-163-0272174-00

PATIENT
  Age: 79 Year
  Sex: Female
  Weight: 81.1939 kg

DRUGS (8)
  1. HUMIRA [Suspect]
     Indication: RHEUMATOID ARTHRITIS
     Dosage: 40 MG, 1 IN 2 WK, SUBCUTANEOUS
     Route: 058
     Dates: start: 20040813
  2. HYDROXYCHLOROQUINE PHOSPHATE [Concomitant]
  3. LEFLUNOMIDE [Concomitant]
  4. FOLIC ACID [Concomitant]
  5. PREDNISONE [Concomitant]
  6. BENICAR [Concomitant]
  7. HYDROCHLOROTHIAZIDE [Concomitant]
  8. UNSPECIFIED INHALER [Concomitant]

REACTIONS (2)
  - INJECTION SITE ERYTHEMA [None]
  - INJECTION SITE PRURITUS [None]
